FAERS Safety Report 5970244-6 (Version None)
Quarter: 2008Q4

REPORT INFORMATION
  Report Type: 
  Country: None (occurrence: None)
  Receive Date: 20081126
  Receipt Date: 20081118
  Transmission Date: 20090506
  Serious: Yes (Life-Threatening, Hospitalization)
  Sender: FDA-Public Use
  Company Number: DE-PFIZER INC-2008098407

PATIENT
  Sex: Female
  Weight: 85 kg

DRUGS (3)
  1. SOMAVERT [Suspect]
     Indication: ACROMEGALY
     Dosage: DAILY DOSE:10MG-FREQ:DAILY
     Dates: start: 20080305
  2. SANDOSTATIN LAR [Suspect]
     Dosage: DAILY DOSE:20MG-FREQ:MONTHLY
     Dates: start: 20080902
  3. LEVOTHYROXINE SODIUM [Concomitant]
     Dates: start: 20080305

REACTIONS (1)
  - SUBARACHNOID HAEMORRHAGE [None]
